FAERS Safety Report 9585463 (Version 1)
Quarter: 2013Q4

REPORT INFORMATION
  Report Type: Spontaneous
  Country: GB (occurrence: GB)
  Receive Date: 20131003
  Receipt Date: 20131003
  Transmission Date: 20140711
  Serious: Yes (Other)
  Sender: FDA-Public Use
  Company Number: GB-AMGEN-GBRSP2013068038

PATIENT
  Age: 80 Year
  Sex: Male

DRUGS (2)
  1. ARANESP [Suspect]
     Indication: NEPHROGENIC ANAEMIA
     Dosage: 10 MUG, QWK
     Route: 065
     Dates: start: 201308
  2. INSULIN [Concomitant]

REACTIONS (4)
  - Choking [Unknown]
  - Swollen tongue [Unknown]
  - Dyspnoea [Unknown]
  - Sensation of foreign body [Unknown]
